FAERS Safety Report 12890117 (Version 1)
Quarter: 2016Q4

REPORT INFORMATION
  Report Type: Report from Study
  Country: JP (occurrence: JP)
  Receive Date: 20161027
  Receipt Date: 20161027
  Transmission Date: 20170207
  Serious: Yes (Other)
  Sender: FDA-Public Use
  Company Number: JP-TEVA-685946ISR

PATIENT
  Age: 67 Year
  Sex: Female
  Weight: 47.6 kg

DRUGS (6)
  1. DOPACOL [Concomitant]
     Active Substance: CARBIDOPA\LEVODOPA
     Dosage: ONGOING
     Dates: start: 2011
  2. TEXMETEN [Concomitant]
     Dosage: ONGOING
     Dates: start: 20160202
  3. BESOFTEN [Concomitant]
     Active Substance: SODIUM ALGINATE
     Dosage: ONGOING
     Dates: start: 20160202
  4. COMTAN [Concomitant]
     Active Substance: ENTACAPONE
     Dates: start: 20160109, end: 20160713
  5. RASAGILINE MESILATE [Suspect]
     Active Substance: RASAGILINE MESYLATE
     Indication: PARKINSON^S DISEASE
     Dosage: DBPC: RASAGILINE OR PLACEBO
     Route: 048
     Dates: start: 20160309, end: 20160705
  6. TRERIEF [Concomitant]
     Active Substance: ZONISAMIDE
     Dosage: ONGOING
     Dates: start: 20151210

REACTIONS (1)
  - Ovarian cancer [Not Recovered/Not Resolved]

NARRATIVE: CASE EVENT DATE: 20160809
